FAERS Safety Report 10246564 (Version 1)
Quarter: 2014Q2

REPORT INFORMATION
  Report Type: Spontaneous
  Country: JP (occurrence: JP)
  Receive Date: 20140619
  Receipt Date: 20140619
  Transmission Date: 20141212
  Serious: Yes (Hospitalization)
  Sender: FDA-Public Use
  Company Number: JP-ASTRAZENECA-2014SE41148

PATIENT
  Sex: Female

DRUGS (2)
  1. FASLODEX [Suspect]
     Indication: BREAST CANCER RECURRENT
     Route: 030
  2. MULTIPLE DRUGS [Concomitant]

REACTIONS (1)
  - Interstitial lung disease [Not Recovered/Not Resolved]
